FAERS Safety Report 9028181 (Version 4)
Quarter: 2013Q1

REPORT INFORMATION
  Report Type: Spontaneous
  Country: JP (occurrence: JP)
  Receive Date: 20130123
  Receipt Date: 20130311
  Transmission Date: 20140127
  Serious: Yes (Other)
  Sender: FDA-Public Use
  Company Number: JP-009507513-1301JPN009010

PATIENT
  Age: 51 Year
  Sex: Female

DRUGS (2)
  1. GLACTIV [Suspect]
     Indication: TYPE 2 DIABETES MELLITUS
     Dosage: 50 MG, QD
     Route: 048
  2. GLIMEPIRIDE [Concomitant]
     Indication: TYPE 2 DIABETES MELLITUS
     Dosage: 2 MG, UNK
     Route: 048

REACTIONS (4)
  - Angina unstable [Recovered/Resolved]
  - Coronary artery stenosis [Unknown]
  - Orthostatic hypotension [Unknown]
  - Loss of consciousness [Unknown]
